FAERS Safety Report 8355553-8 (Version None)
Quarter: 2012Q2

REPORT INFORMATION
  Report Type: 
  Country: None (occurrence: None)
  Receive Date: 20120513
  Receipt Date: 20120505
  Transmission Date: 20120825
  Serious: Yes (Other)
  Sender: FDA-Public Use
  Company Number: CA-ELI_LILLY_AND_COMPANY-CA201205002183

PATIENT
  Age: 47 Year
  Sex: Female

DRUGS (10)
  1. MULTI-VITAMIN [Concomitant]
  2. VITAMIN B-12 [Concomitant]
  3. ACIDOPHILUS [Concomitant]
  4. VITAMIN D [Concomitant]
  5. CALCIUM [Concomitant]
  6. HUMIRA [Concomitant]
  7. SIMVASTATIN [Concomitant]
     Dosage: UNK
  8. FORTEO [Suspect]
     Indication: OSTEOPOROSIS
     Dosage: 20 UG, QD
     Route: 058
     Dates: start: 20120126
  9. CLONAZEPAM [Concomitant]
  10. MS CONTIN [Concomitant]

REACTIONS (2)
  - CONCUSSION [None]
  - ROAD TRAFFIC ACCIDENT [None]
